FAERS Safety Report 6768421-X (Version None)
Quarter: 2010Q2

REPORT INFORMATION
  Report Type: 
  Country: None (occurrence: None)
  Receive Date: 20100614
  Receipt Date: 20100603
  Transmission Date: 20101027
  Serious: Yes (Hospitalization, Other)
  Sender: FDA-Public Use
  Company Number: GB-ELI_LILLY_AND_COMPANY-GB201004007210

PATIENT
  Sex: Male
  Weight: 108 kg

DRUGS (7)
  1. BYETTA [Suspect]
     Indication: TYPE 2 DIABETES MELLITUS
     Dosage: 5 UG, 2/D
     Route: 058
     Dates: start: 20100304, end: 20100424
  2. METFORMIN HCL [Concomitant]
     Indication: DIABETES MELLITUS
     Dosage: 500 MG, 2/D
     Route: 048
  3. GLICLAZIDE [Concomitant]
     Indication: DIABETES MELLITUS
     Dosage: 80 MG, 2/D
     Route: 048
  4. BISOPROLOL [Concomitant]
     Indication: CARDIOVASCULAR DISORDER
     Dosage: 5 MG, UNKNOWN
     Route: 048
  5. FRUSEMIDE [Concomitant]
     Indication: CARDIOVASCULAR DISORDER
     Dosage: 160 MG, UNKNOWN
     Route: 048
  6. RAMIPRIL [Concomitant]
     Indication: CARDIOVASCULAR DISORDER
     Dosage: 10 MG, DAILY (1/D)
     Route: 048
  7. ROSUVASTATIN [Concomitant]
     Indication: CARDIOVASCULAR DISORDER
     Dosage: 10 MG, UNKNOWN
     Route: 048

REACTIONS (3)
  - CHOLELITHIASIS [None]
  - PANCREATITIS ACUTE [None]
  - RENAL FAILURE ACUTE [None]
